FAERS Safety Report 12688073 (Version 2)
Quarter: 2016Q3

REPORT INFORMATION
  Report Type: Spontaneous
  Country: US (occurrence: US)
  Receive Date: 20160826
  Receipt Date: 20160921
  Transmission Date: 20161109
  Serious: No
  Sender: FDA-Public Use
  Company Number: US-009507513-1608USA007845

PATIENT
  Age: 72 Year
  Sex: Male

DRUGS (9)
  1. FLOMAX [Concomitant]
     Active Substance: TAMSULOSIN HYDROCHLORIDE
  2. METAMUCIL [Concomitant]
     Active Substance: PLANTAGO SEED
  3. HYDROXYUREA. [Concomitant]
     Active Substance: HYDROXYUREA
  4. INTRON A [Suspect]
     Active Substance: INTERFERON ALFA-2B
     Indication: MALIGNANT MAST CELL NEOPLASM
     Dosage: 1 ML (6M UNIUTS), TIW
     Route: 058
     Dates: start: 20160615
  5. SPIRIVA [Concomitant]
     Active Substance: TIOTROPIUM BROMIDE MONOHYDRATE
  6. SOTALOL. [Concomitant]
     Active Substance: SOTALOL
  7. SENOKOT [Concomitant]
     Active Substance: SENNOSIDES
  8. LASIX [Concomitant]
     Active Substance: FUROSEMIDE
  9. ASPIRIN. [Concomitant]
     Active Substance: ASPIRIN

REACTIONS (7)
  - Dysgeusia [Unknown]
  - Balance disorder [Unknown]
  - Product use issue [Unknown]
  - Tinea pedis [Unknown]
  - Skin ulcer [Unknown]
  - Decreased appetite [Unknown]
  - Fatigue [Unknown]

NARRATIVE: CASE EVENT DATE: 20160615
